FAERS Safety Report 12352678 (Version 3)
Quarter: 2016Q4

REPORT INFORMATION
  Report Type: Report from Study
  Country: JP (occurrence: JP)
  Receive Date: 20160510
  Receipt Date: 20161104
  Transmission Date: 20170207
  Serious: Yes (Hospitalization, Other)
  Sender: FDA-Public Use
  Company Number: JP-GILEAD-2016-0211380

PATIENT
  Age: 7 Year
  Sex: Male
  Weight: 16 kg

DRUGS (26)
  1. ADCIRCA [Concomitant]
     Active Substance: TADALAFIL
     Indication: PULMONARY ARTERIAL HYPERTENSION
     Dosage: UNK
     Dates: start: 20140806
  2. INFLUENZA HA VACCINE [Concomitant]
     Active Substance: INFLUENZA VIRUS VACCINE
     Indication: ANTIVIRAL PROPHYLAXIS
     Dosage: UNK
     Dates: start: 20131205, end: 20131205
  3. AMBRISENTAN [Suspect]
     Active Substance: AMBRISENTAN
     Indication: PULMONARY ARTERIAL HYPERTENSION
     Dosage: 0.8 MG, QD
     Route: 048
     Dates: start: 20131105, end: 20131114
  4. AMBRISENTAN [Suspect]
     Active Substance: AMBRISENTAN
     Dosage: 2.5 MG, QD
     Route: 048
     Dates: start: 20140604, end: 20141007
  5. AMBRISENTAN [Suspect]
     Active Substance: AMBRISENTAN
     Dosage: 5 MG, QD
     Route: 048
     Dates: start: 20150513
  6. PROCYLIN [Concomitant]
     Active Substance: BERAPROST SODIUM
     Indication: PULMONARY ARTERIAL HYPERTENSION
     Dosage: UNK
     Dates: end: 20140615
  7. AMBRISENTAN [Suspect]
     Active Substance: AMBRISENTAN
     Dosage: 4.5 MG, QD
     Route: 048
     Dates: start: 20150304, end: 20150512
  8. REVATIO [Concomitant]
     Active Substance: SILDENAFIL CITRATE
     Indication: PULMONARY ARTERIAL HYPERTENSION
     Dosage: UNK
     Dates: end: 20140810
  9. INFLUENZA HA VACCINE [Concomitant]
     Active Substance: INFLUENZA VIRUS VACCINE
     Dosage: UNK
     Dates: start: 20140205, end: 20140205
  10. TENORMIN [Concomitant]
     Active Substance: ATENOLOL
     Indication: PULMONARY ARTERIAL HYPERTENSION
     Dosage: UNK
     Dates: start: 20140507
  11. AMBRISENTAN [Suspect]
     Active Substance: AMBRISENTAN
     Dosage: 1.6 MG, QD
     Route: 048
     Dates: start: 20140205, end: 20140603
  12. AMBRISENTAN [Suspect]
     Active Substance: AMBRISENTAN
     Dosage: 3.5 MG, QD
     Route: 048
     Dates: start: 20141112, end: 20141209
  13. INDERAL [Concomitant]
     Active Substance: PROPRANOLOL HYDROCHLORIDE
     Dosage: UNK
     Dates: end: 20140511
  14. TRACLEER [Concomitant]
     Active Substance: BOSENTAN
     Indication: PULMONARY ARTERIAL HYPERTENSION
     Dosage: UNK
     Dates: end: 20140216
  15. OXYGEN. [Concomitant]
     Active Substance: OXYGEN
  16. FERROMIA [Concomitant]
     Active Substance: FERROUS CITRATE
     Dosage: UNK
     Dates: start: 20140604
  17. INFLUENZA HA VACCINE [Concomitant]
     Active Substance: INFLUENZA VIRUS VACCINE
     Dosage: UNK
     Dates: start: 20140305, end: 20140305
  18. AMBRISENTAN [Suspect]
     Active Substance: AMBRISENTAN
     Dosage: 1.6 MG, QD
     Route: 048
     Dates: start: 20131207, end: 20131209
  19. AMBRISENTAN [Suspect]
     Active Substance: AMBRISENTAN
     Dosage: 1.6 MG, QD
     Route: 048
     Dates: start: 20140108, end: 20140117
  20. AMBRISENTAN [Suspect]
     Active Substance: AMBRISENTAN
     Dosage: 3 MG, QD
     Route: 048
     Dates: start: 20141008, end: 20141111
  21. AMBRISENTAN [Suspect]
     Active Substance: AMBRISENTAN
     Dosage: 4 MG, QD
     Route: 048
     Dates: start: 20141210, end: 20150303
  22. INCREMIN                           /00023544/ [Concomitant]
     Dosage: UNK
     Dates: end: 20140615
  23. EPOPROSTENOL SODIUM. [Concomitant]
     Active Substance: EPOPROSTENOL SODIUM
     Indication: PULMONARY ARTERIAL HYPERTENSION
     Dosage: 5.7 NG/KG/MIN
  24. EPOPROSTENOL SODIUM. [Concomitant]
     Active Substance: EPOPROSTENOL SODIUM
     Dosage: 3.85 NG/KG/MIN
  25. INFLUENZA HA VACCINE [Concomitant]
     Active Substance: INFLUENZA VIRUS VACCINE
     Dosage: UNK
     Dates: start: 20141210, end: 20141210
  26. INFLUENZA HA VACCINE [Concomitant]
     Active Substance: INFLUENZA VIRUS VACCINE
     Dosage: UNK
     Dates: start: 20150107, end: 20150107

REACTIONS (16)
  - Skin infection [Recovered/Resolved]
  - Pyrexia [Recovered/Resolved]
  - Sputum retention [Unknown]
  - Pneumonia bacterial [Recovered/Resolved]
  - Gastroenteritis [Recovered/Resolved]
  - Pyrexia [Recovered/Resolved]
  - Fall [Unknown]
  - Dermatitis contact [Recovered/Resolved]
  - Ligament sprain [Recovered/Resolved]
  - Rectal tenesmus [Unknown]
  - Off label use [Not Recovered/Not Resolved]
  - Application site pruritus [Recovered/Resolved]
  - Acute respiratory failure [Recovered/Resolved]
  - Productive cough [Unknown]
  - Diarrhoea [Unknown]
  - Vomiting [Unknown]

NARRATIVE: CASE EVENT DATE: 20131105
